FAERS Safety Report 11434424 (Version 1)
Quarter: 2015Q3

REPORT INFORMATION
  Report Type: Other
  Country: GB (occurrence: GB)
  Receive Date: 20150831
  Receipt Date: 20150831
  Transmission Date: 20151125
  Serious: Yes (Other)
  Sender: FDA-Public Use
  Company Number: GB-SHIRE-GB201510721

PATIENT
  Sex: Male

DRUGS (1)
  1. ELAPRASE [Suspect]
     Active Substance: IDURSULFASE
     Indication: MUCOPOLYSACCHARIDOSIS II
     Dosage: 24 MG (4 X 6MG VIALS), 1X/WEEK
     Route: 041
     Dates: start: 20131030

REACTIONS (2)
  - Infection [Not Recovered/Not Resolved]
  - Feeding tube complication [Not Recovered/Not Resolved]
